FAERS Safety Report 4560861-2 (Version None)
Quarter: 2005Q1

REPORT INFORMATION
  Report Type: 
  Country: None (occurrence: None)
  Receive Date: 20050121
  Receipt Date: 20050112
  Transmission Date: 20050727
  Serious: Yes (Death, Hospitalization)
  Sender: FDA-Public Use
  Company Number: 2004CG02424

PATIENT
  Age: 74 Year
  Sex: Male

DRUGS (4)
  1. CRESTOR [Suspect]
     Indication: HYPERCHOLESTEROLAEMIA
     Dosage: 10 MG DAILY PO
     Route: 048
     Dates: start: 20040801
  2. DICLOFENAC [Suspect]
  3. AMLODIPINE BESYLATE [Concomitant]
  4. ACETAMINOPHEN [Concomitant]

REACTIONS (6)
  - CORONARY ARTERY DISEASE [None]
  - CORONARY ARTERY THROMBOSIS [None]
  - DRUG INTERACTION [None]
  - MYOCARDIAL INFARCTION [None]
  - PAIN IN EXTREMITY [None]
  - VENTRICULAR FIBRILLATION [None]
